FAERS Safety Report 17842719 (Version 1)
Quarter: 2020Q2

REPORT INFORMATION
  Report Type: Spontaneous
  Country: US (occurrence: US)
  Receive Date: 20200529
  Receipt Date: 20200529
  Transmission Date: 20200714
  Serious: Yes (Other)
  Sender: FDA-Public Use
  Company Number: US-PFIZER INC-2020210794

PATIENT
  Age: 74 Year
  Sex: Male
  Weight: 170 kg

DRUGS (6)
  1. AZITHROMYCIN ANHYDROUS. [Suspect]
     Active Substance: AZITHROMYCIN ANHYDROUS
     Dosage: UNK
  2. PREDNISONE. [Concomitant]
     Active Substance: PREDNISONE
     Dosage: UNK
  3. ELIQUIS [Concomitant]
     Active Substance: APIXABAN
     Indication: CEREBROVASCULAR ACCIDENT
     Dosage: 5 MG, 2X/DAY
     Route: 048
     Dates: start: 20180808, end: 20191124
  4. AVELUMAB [Concomitant]
     Active Substance: AVELUMAB
     Dosage: 771 MG, CYCLIC
     Route: 042
     Dates: start: 20191017, end: 20191114
  5. AZITHROMYCIN ANHYDROUS. [Suspect]
     Active Substance: AZITHROMYCIN ANHYDROUS
     Indication: CHRONIC OBSTRUCTIVE PULMONARY DISEASE
     Dosage: UNK
  6. AVELUMAB [Concomitant]
     Active Substance: AVELUMAB
     Indication: NON-SMALL CELL LUNG CANCER
     Dosage: 762 MG, CYCLIC
     Route: 042
     Dates: start: 20150715, end: 20191003

REACTIONS (7)
  - Pneumonia [Unknown]
  - Dyspnoea [Unknown]
  - Productive cough [Unknown]
  - Leukocytosis [Unknown]
  - Drug ineffective [Unknown]
  - Sputum discoloured [Unknown]
  - Hemiparesis [Recovered/Resolved]
